FAERS Safety Report 4567217-7 (Version None)
Quarter: 2005Q1

REPORT INFORMATION
  Report Type: 
  Country: None (occurrence: None)
  Receive Date: 20050201
  Receipt Date: 20050111
  Transmission Date: 20050727
  Serious: Yes (Death, Congenital Anomaly)
  Sender: FDA-Public Use
  Company Number: DE-GLAXOSMITHKLINE-D0045599B

PATIENT
  Sex: Male
  Weight: 3.9 kg

DRUGS (1)
  1. LAMICTAL [Suspect]
     Dosage: 100MG PER DAY
     Dates: start: 20040701, end: 20041229

REACTIONS (4)
  - ABORTION INDUCED [None]
  - DRUG EXPOSURE DURING PREGNANCY [None]
  - GASTROSCHISIS [None]
  - ULTRASOUND ANTENATAL SCREEN ABNORMAL [None]
